FAERS Safety Report 13155289 (Version 1)
Quarter: 2017Q1

REPORT INFORMATION
  Report Type: Spontaneous
  Country: GB (occurrence: GB)
  Receive Date: 20170126
  Receipt Date: 20170126
  Transmission Date: 20170428
  Serious: Yes (Hospitalization)
  Sender: FDA-Public Use
  Company Number: GB-TEVA-732350ACC

PATIENT
  Age: 64 Year
  Sex: Female

DRUGS (1)
  1. NORETHISTERONE [Suspect]
     Active Substance: NORETHINDRONE
     Indication: VAGINAL HAEMORRHAGE
     Dosage: 10 MILLIGRAM DAILY;

REACTIONS (1)
  - Thrombophlebitis [Not Recovered/Not Resolved]
